FAERS Safety Report 9848657 (Version 1)
Quarter: 2014Q1

REPORT INFORMATION
  Report Type: Spontaneous
  Country: US (occurrence: None)
  Receive Date: 20140127
  Receipt Date: 20140127
  Transmission Date: 20141002
  Serious: Yes (Other)
  Sender: FDA-Public Use
  Company Number: None

PATIENT
  Age: 22 Year
  Sex: Male

DRUGS (1)
  1. PROVIGIL [Suspect]
     Indication: NARCOLEPSY

REACTIONS (3)
  - Mania [None]
  - Anxiety [None]
  - Insomnia [None]
